FAERS Safety Report 9080981 (Version 1)
Quarter: 2013Q1

REPORT INFORMATION
  Report Type: Report from Study
  Country: US (occurrence: US)
  Receive Date: 20130130
  Receipt Date: 20130130
  Transmission Date: 20140127
  Serious: No
  Sender: FDA-Public Use
  Company Number: US-ABBOTT-12P-163-0964066-00

PATIENT
  Age: 40 Year
  Sex: Female

DRUGS (5)
  1. HUMIRA 40 MG/0.8 ML PEN [Suspect]
     Indication: CROHN^S DISEASE
     Dates: start: 20120517
  2. ASACOL [Concomitant]
     Indication: PRODUCT USED FOR UNKNOWN INDICATION
     Dosage: 800MG X 2 TABLETS TWICE DAILY
  3. HYDROCODONE [Concomitant]
     Indication: PAIN
     Dosage: 200/7.5 DURING FLARE UP
  4. PROMETHAZINE [Concomitant]
     Indication: VOMITING
  5. PROMETHEGAN [Concomitant]
     Indication: VOMITING
     Dosage: IF VOMITING PERSISTS

REACTIONS (1)
  - Nasal congestion [Not Recovered/Not Resolved]
